FAERS Safety Report 25084622 (Version 1)
Quarter: 2025Q1

REPORT INFORMATION
  Report Type: Report from Study
  Country: JP (occurrence: JP)
  Receive Date: 20250317
  Receipt Date: 20250317
  Transmission Date: 20250409
  Serious: Yes (Hospitalization)
  Sender: ROCHE
  Company Number: JP-CHUGAI-2024030978

PATIENT
  Age: 79 Year
  Sex: Male

DRUGS (2)
  1. PIASKY [Suspect]
     Active Substance: CROVALIMAB-AKKZ
     Indication: Paroxysmal nocturnal haemoglobinuria
     Route: 050
     Dates: start: 20240805, end: 20240826
  2. PIASKY [Suspect]
     Active Substance: CROVALIMAB-AKKZ
     Route: 050

REACTIONS (5)
  - Cellulitis [Recovered/Resolved]
  - Haemorrhage subcutaneous [Not Recovered/Not Resolved]
  - Cardiac dysfunction [Recovering/Resolving]
  - Haemoglobin decreased [Not Recovered/Not Resolved]
  - Oedema [Recovering/Resolving]

NARRATIVE: CASE EVENT DATE: 20240826
